FAERS Safety Report 7520181-0 (Version None)
Quarter: 2011Q2

REPORT INFORMATION
  Report Type: 
  Country: None (occurrence: None)
  Receive Date: 20110602
  Receipt Date: 20110111
  Transmission Date: 20111010
  Serious: No
  Sender: FDA-Public Use
  Company Number: US-BAYER-2011-036819

PATIENT
  Age: 48 Year
  Sex: Female

DRUGS (1)
  1. FINACEA [Suspect]

REACTIONS (1)
  - SKIN DISCOLOURATION [None]
